FAERS Safety Report 6877654-3 (Version None)
Quarter: 2010Q3

REPORT INFORMATION
  Report Type: 
  Country: None (occurrence: None)
  Receive Date: 20100727
  Receipt Date: 20100426
  Transmission Date: 20110219
  Serious: No
  Sender: FDA-Public Use
  Company Number: US-ABBOTT-10P-163-0641867-00

PATIENT
  Age: 53 Year
  Sex: Female

DRUGS (3)
  1. SYNTHROID [Suspect]
     Indication: HYPOTHYROIDISM
  2. SYNTHROID [Suspect]
     Dates: start: 19780101
  3. XANAX [Concomitant]
     Indication: ANXIETY

REACTIONS (7)
  - DIARRHOEA [None]
  - ILL-DEFINED DISORDER [None]
  - INSOMNIA [None]
  - JOINT CREPITATION [None]
  - MUSCULAR WEAKNESS [None]
  - PALPITATIONS [None]
  - PLATELET COUNT DECREASED [None]
